FAERS Safety Report 15459585 (Version 1)
Quarter: 2018Q4

REPORT INFORMATION
  Report Type: Spontaneous
  Country: US (occurrence: US)
  Receive Date: 20181001
  Receipt Date: 20181001
  Transmission Date: 20190204
  Serious: Yes (Other)
  Sender: FDA-Public Use
  Company Number: None

PATIENT
  Age: 73 Year
  Sex: Female
  Weight: 77.11 kg

DRUGS (13)
  1. OMEGA [Concomitant]
     Active Substance: CONVALLARIA MAJALIS\CRATAEGUS LAEVIGATA LEAF\PROXYPHYLLINE
  2. VITAMIN [Concomitant]
     Active Substance: VITAMINS
  3. LIDOCAINE PATCH 5% 30 PATCHES [Suspect]
     Active Substance: LIDOCAINE
     Indication: ARTHRALGIA
     Dosage: ?          QUANTITY:5 % PERCENT;OTHER FREQUENCY:12 HR PATCH, 30;?
     Route: 061
     Dates: start: 20180608, end: 20180614
  4. ADVAIR DISKUS [Concomitant]
     Active Substance: FLUTICASONE PROPIONATE\SALMETEROL XINAFOATE
  5. FLUTICASONE. [Concomitant]
     Active Substance: FLUTICASONE
  6. SALMETEROL [Concomitant]
     Active Substance: SALMETEROL
  7. LIDOCAINE PATCH 5% 30 PATCHES [Suspect]
     Active Substance: LIDOCAINE
     Indication: BACK PAIN
     Dosage: ?          QUANTITY:5 % PERCENT;OTHER FREQUENCY:12 HR PATCH, 30;?
     Route: 061
     Dates: start: 20180608, end: 20180614
  8. CYMBALTA [Concomitant]
     Active Substance: DULOXETINE HYDROCHLORIDE
  9. COENZYME Q10 [Concomitant]
     Active Substance: UBIDECARENONE
  10. EZETIMIBE. [Concomitant]
     Active Substance: EZETIMIBE
  11. PANTOPRAZOLE [Concomitant]
     Active Substance: PANTOPRAZOLE
  12. LEVALBUTEROL. [Concomitant]
     Active Substance: LEVALBUTEROL
  13. MELATONIN [Concomitant]
     Active Substance: MELATONIN

REACTIONS (3)
  - Drug effect decreased [None]
  - Device adhesion issue [None]
  - Product substitution issue [None]

NARRATIVE: CASE EVENT DATE: 20180802
